FAERS Safety Report 5246756-X (Version None)
Quarter: 2007Q1

REPORT INFORMATION
  Report Type: 
  Country: None (occurrence: None)
  Receive Date: 20070220
  Receipt Date: 20070207
  Transmission Date: 20070707
  Serious: No
  Sender: FDA-Public Use
  Company Number: E3810-00637-SPO-US

PATIENT
  Age: 74 Year
  Sex: Female

DRUGS (2)
  1. ACIPHEX [Suspect]
     Indication: GASTROOESOPHAGEAL REFLUX DISEASE
     Dosage: 20 MG, UNKNOWN, ORAL
     Route: 048
  2. ARICEPT [Concomitant]

REACTIONS (3)
  - DEMENTIA ALZHEIMER'S TYPE [None]
  - HEADACHE [None]
  - VERTIGO [None]
